FAERS Safety Report 23545165 (Version 1)
Quarter: 2024Q1

REPORT INFORMATION
  Report Type: Spontaneous
  Country: GB (occurrence: GB)
  Receive Date: 20240220
  Receipt Date: 20240220
  Transmission Date: 20240409
  Serious: Yes (Other)
  Sender: FDA-Public Use
  Company Number: None

PATIENT
  Age: 87 Year
  Sex: Female

DRUGS (11)
  1. METFORMIN [Suspect]
     Active Substance: METFORMIN HYDROCHLORIDE
     Indication: Product used for unknown indication
  2. CALCI D [Concomitant]
     Indication: Product used for unknown indication
     Dosage: 1 MILLIMOLE PER KILOGRAM WITH EVENING MEAL (REPLACES AD
     Dates: start: 20230309
  3. INSULIN HUMAN [Concomitant]
     Active Substance: INSULIN HUMAN
     Indication: Product used for unknown indication
     Dosage: 50 UNITS AT BREAKFAST AND 12 UNITS AT TEA TIME
     Dates: start: 20230116
  4. AMLODIPINE [Concomitant]
     Active Substance: AMLODIPINE BESYLATE
     Indication: Product used for unknown indication
     Dosage: 1 MILLIMOLE PER KILOGRAM
     Dates: start: 20231107
  5. ATORVASTATIN [Concomitant]
     Active Substance: ATORVASTATIN
     Indication: Product used for unknown indication
     Dosage: 1 MILLIMOLE PER KILOGRAM
     Dates: start: 20230309
  6. CLOPIDOGREL [Concomitant]
     Active Substance: CLOPIDOGREL BISULFATE
     Indication: Product used for unknown indication
     Dosage: 1 MILLIMOLE PER KILOGRAM
     Dates: start: 20230309
  7. CYCLIZINE [Concomitant]
     Active Substance: CYCLIZINE
     Indication: Product used for unknown indication
     Dosage: ONE TO BE TAKEN UP TO A MAXIMUM OF THREE TIMES
     Dates: start: 20231019
  8. LANSOPRAZOLE [Concomitant]
     Active Substance: LANSOPRAZOLE
     Indication: Product used for unknown indication
     Dosage: 1 MILLIMOLE PER KILOGRAM
     Dates: start: 20230309
  9. LINAGLIPTIN [Concomitant]
     Active Substance: LINAGLIPTIN
     Indication: Product used for unknown indication
     Dosage: 1 MILLIMOLE PER KILOGRAM
     Dates: start: 20230829
  10. NEFOPAM [Concomitant]
     Active Substance: NEFOPAM
     Indication: Product used for unknown indication
     Dosage: TAKE ONE OR TWO UP TO THREE TIMES A DAY
     Dates: start: 20240108, end: 20240207
  11. ACETAMINOPHEN [Concomitant]
     Active Substance: ACETAMINOPHEN
     Indication: Product used for unknown indication
     Dosage: ONE OR TWO TO BE TAKEN FOUR TIMES A DAY
     Dates: start: 20230309

REACTIONS (1)
  - Gastrointestinal disorder [Recovered/Resolved]
